FAERS Safety Report 11192746 (Version 1)
Quarter: 2015Q2

REPORT INFORMATION
  Report Type: Spontaneous
  Country: US (occurrence: None)
  Receive Date: 20150612
  Receipt Date: 20150612
  Transmission Date: 20150821
  Serious: Yes (Hospitalization)
  Sender: FDA-Public Use
  Company Number: FK201502636

PATIENT
  Age: 85 Year
  Sex: Female

DRUGS (3)
  1. AMIODARONE HCL [Suspect]
     Active Substance: AMIODARONE HYDROCHLORIDE
     Indication: PRODUCT USED FOR UNKNOWN INDICATION
  2. CARVEDILOL (CARVEDILOL) [Concomitant]
     Active Substance: CARVEDILOL
  3. LISINOPRIL (LISINOPRIL) [Concomitant]
     Active Substance: LISINOPRIL

REACTIONS (12)
  - White blood cell count decreased [None]
  - Oxygen saturation decreased [None]
  - Pleural effusion [None]
  - Blood potassium decreased [None]
  - Blood urea increased [None]
  - Haemoglobin decreased [None]
  - Blood pressure decreased [None]
  - Myxoedema coma [None]
  - Blood sodium increased [None]
  - Blood creatinine increased [None]
  - Blood calcium decreased [None]
  - Platelet count decreased [None]
